FAERS Safety Report 11646186 (Version 1)
Quarter: 2015Q4

REPORT INFORMATION
  Report Type: Spontaneous
  Country: US (occurrence: US)
  Receive Date: 20151020
  Receipt Date: 20151020
  Transmission Date: 20160304
  Serious: No
  Sender: FDA-Public Use
  Company Number: US-ROCHE-ITM201506IM018326

PATIENT
  Sex: Female

DRUGS (2)
  1. ESBRIET [Suspect]
     Active Substance: PIRFENIDONE
     Indication: IDIOPATHIC PULMONARY FIBROSIS
     Dosage: THREE 267 MG CAPSULES THRICE A DAY, 2403 MG
     Route: 048
     Dates: start: 20150310
  2. ESBRIET [Suspect]
     Active Substance: PIRFENIDONE
     Dosage: TWO 267 MG THRICE A DAY 1602 MG
     Route: 048
     Dates: start: 20150310

REACTIONS (3)
  - Seasonal allergy [Unknown]
  - Rash [Unknown]
  - Rhinorrhoea [Unknown]
